FAERS Safety Report 4406023-0 (Version None)
Quarter: 2004Q3

REPORT INFORMATION
  Report Type: 
  Country: None (occurrence: None)
  Receive Date: 20040723
  Receipt Date: 20040322
  Transmission Date: 20050211
  Serious: No
  Sender: FDA-Public Use
  Company Number: US-GLAXOSMITHKLINE-A0503863A

PATIENT
  Age: 66 Year
  Sex: Male

DRUGS (14)
  1. AVANDIA [Suspect]
     Dosage: 8MG PER DAY
     Route: 048
     Dates: start: 20040316
  2. GLUCOTROL [Concomitant]
  3. LISINOPRIL [Concomitant]
  4. COZAAR [Concomitant]
  5. ZOCOR [Concomitant]
  6. NITRO-BID [Concomitant]
  7. HYDROCHLOROTHIAZIDE [Concomitant]
  8. ATIVAN [Concomitant]
  9. COUMADIN [Concomitant]
  10. TEGRETOL [Concomitant]
  11. ZOLOFT [Concomitant]
  12. METOCLOPRAMIDE [Concomitant]
  13. ACIPHEX [Concomitant]
  14. FLONASE [Concomitant]

REACTIONS (1)
  - DRUG INEFFECTIVE [None]
